FAERS Safety Report 8109623-X (Version None)
Quarter: 2012Q1

REPORT INFORMATION
  Report Type: 
  Country: None (occurrence: None)
  Receive Date: 20120202
  Receipt Date: 20120117
  Transmission Date: 20120608
  Serious: No
  Sender: FDA-Public Use
  Company Number: US-AMGEN-USASP2012003362

PATIENT
  Age: 54 Year
  Sex: Female

DRUGS (2)
  1. SIMPONI [Concomitant]
     Dosage: UNK
  2. ENBREL [Suspect]
     Indication: RHEUMATOID ARTHRITIS
     Dosage: 50 MG, QWK

REACTIONS (13)
  - EYE PAIN [None]
  - MUSCULOSKELETAL STIFFNESS [None]
  - HYPOAESTHESIA [None]
  - HEADACHE [None]
  - PAIN IN EXTREMITY [None]
  - RHINITIS [None]
  - UPPER RESPIRATORY TRACT INFECTION [None]
  - HYPOKINESIA [None]
  - FACIAL PAIN [None]
  - ASTHENIA [None]
  - CATARACT [None]
  - UPPER RESPIRATORY TRACT INFLAMMATION [None]
  - SINUSITIS [None]
